FAERS Safety Report 6239008-2 (Version None)
Quarter: 2009Q2

REPORT INFORMATION
  Report Type: 
  Country: None (occurrence: None)
  Receive Date: 20090622
  Receipt Date: 20090610
  Transmission Date: 20091009
  Serious: Yes (Hospitalization)
  Sender: FDA-Public Use
  Company Number: B0578236A

PATIENT
  Sex: Male

DRUGS (7)
  1. ZIAGEN [Suspect]
     Indication: HIV INFECTION
     Route: 048
     Dates: start: 20020401, end: 20060101
  2. KIVEXA [Suspect]
     Indication: HIV INFECTION
     Route: 048
     Dates: start: 20060101, end: 20090407
  3. NORVIR [Concomitant]
     Route: 065
  4. REYATAZ [Concomitant]
     Route: 065
     Dates: end: 20060101
  5. VIREAD [Concomitant]
     Route: 065
  6. VIDEX [Concomitant]
     Route: 065
     Dates: end: 20050401
  7. PREZISTA [Concomitant]
     Route: 065
     Dates: start: 20060101

REACTIONS (5)
  - ARTERIOSCLEROSIS [None]
  - FEMORAL ARTERY OCCLUSION [None]
  - INTERMITTENT CLAUDICATION [None]
  - PERIPHERAL VASCULAR DISORDER [None]
  - VENOUS STENOSIS [None]
